FAERS Safety Report 4466339-9 (Version None)
Quarter: 2004Q4

REPORT INFORMATION
  Report Type: 
  Country: None (occurrence: None)
  Receive Date: 20041005
  Receipt Date: 20040928
  Transmission Date: 20050328
  Serious: Yes (Hospitalization)
  Sender: FDA-Public Use
  Company Number: GB-GLAXOSMITHKLINE-B0346563A

PATIENT
  Age: 70 Year
  Sex: Male
  Weight: 14.5 kg

DRUGS (12)
  1. AVANDIA [Suspect]
     Indication: DIABETES MELLITUS
     Dosage: 1UNIT IN THE MORNING
     Route: 048
     Dates: start: 20010911, end: 20040922
  2. MOMETASONE FUROATE [Concomitant]
     Route: 065
     Dates: start: 20040916
  3. GLICLAZIDE [Concomitant]
     Route: 065
     Dates: start: 19980724
  4. NIZATIDINE [Concomitant]
     Route: 065
     Dates: start: 19980703
  5. CITALOPRAM HYDROBROMIDE [Concomitant]
     Route: 065
     Dates: start: 19990407
  6. ISOSORBIDE MONONITRATE [Concomitant]
     Dosage: 2UNIT IN THE MORNING
     Route: 065
     Dates: start: 20010911
  7. ALBUTEROL [Concomitant]
     Dosage: 2UNIT FOUR TIMES PER DAY
     Route: 065
     Dates: start: 20020621
  8. ATORVASTATIN CALCIUM [Concomitant]
     Dosage: 1UNIT PER DAY
     Route: 065
     Dates: start: 20040715
  9. METFORMIN HCL [Concomitant]
     Dosage: 1UNIT PER DAY
     Route: 065
     Dates: start: 20040727
  10. BECLOMETHASONE DIPROPIONATE [Concomitant]
     Dosage: 2UNIT FOUR TIMES PER DAY
     Route: 065
     Dates: end: 20040803
  11. CO-CODAMOL [Concomitant]
     Route: 065
     Dates: start: 19980703
  12. SERETIDE [Concomitant]
     Dosage: 2UNIT TWICE PER DAY
     Dates: start: 20040817

REACTIONS (3)
  - DYSPNOEA [None]
  - OXYGEN SATURATION DECREASED [None]
  - PULMONARY OEDEMA [None]
